FAERS Safety Report 8003660-1 (Version None)
Quarter: 2011Q4

REPORT INFORMATION
  Report Type: 
  Country: None (occurrence: None)
  Receive Date: 20111222
  Receipt Date: 20111209
  Transmission Date: 20120403
  Serious: Yes (Hospitalization)
  Sender: FDA-Public Use
  Company Number: US-MYLANLABS-2011S1025514

PATIENT
  Age: 76 Year
  Sex: Female
  Weight: 47.5 kg

DRUGS (14)
  1. SEVOFLURANE [Suspect]
     Indication: GENERAL ANAESTHESIA
     Dosage: 0.5% - 4.0%
     Route: 055
     Dates: start: 20110127, end: 20110127
  2. SEVOFLURANE [Suspect]
     Dosage: 3 MINUTES
     Route: 055
     Dates: start: 20110127, end: 20110127
  3. ROCURONIUM BROMIDE [Concomitant]
     Indication: GENERAL ANAESTHESIA
     Route: 042
     Dates: start: 20110127, end: 20110127
  4. REMIFENTANIL [Suspect]
     Indication: GENERAL ANAESTHESIA
     Dosage: PER MINUTE
     Route: 042
     Dates: start: 20110127, end: 20110127
  5. SEVOFLURANE [Suspect]
     Dosage: 105 MINUTES
     Route: 055
     Dates: start: 20110127, end: 20110127
  6. FENTANYL [Suspect]
     Indication: GENERAL ANAESTHESIA
     Route: 042
     Dates: start: 20110127, end: 20110127
  7. PROPOFOL [Concomitant]
     Indication: GENERAL ANAESTHESIA
     Route: 042
     Dates: start: 20110127, end: 20110127
  8. FLURBIPROFEN [Concomitant]
     Route: 042
     Dates: start: 20110127, end: 20110127
  9. SEVOFLURANE [Suspect]
     Dosage: 3 MINUTES
     Route: 055
     Dates: start: 20110127, end: 20110127
  10. REMIFENTANIL [Suspect]
     Dosage: PER MINUTE
     Route: 042
     Dates: start: 20110127, end: 20110127
  11. FENTANYL [Suspect]
     Route: 042
     Dates: start: 20110127, end: 20110127
  12. CHLORHEXIDINE W/LIDOCAINE [Concomitant]
     Route: 042
     Dates: start: 20110127, end: 20110127
  13. SEVOFLURANE [Suspect]
     Dosage: 5 MINUTES
     Route: 055
     Dates: start: 20110127, end: 20110127
  14. REMIFENTANIL [Suspect]
     Dosage: PER MINUTE
     Route: 042
     Dates: start: 20110127, end: 20110127

REACTIONS (2)
  - STRESS CARDIOMYOPATHY [None]
  - DELAYED RECOVERY FROM ANAESTHESIA [None]
